FAERS Safety Report 11769590 (Version 2)
Quarter: 2016Q2

REPORT INFORMATION
  Report Type: Spontaneous
  Country: US (occurrence: US)
  Receive Date: 20151123
  Receipt Date: 20160512
  Transmission Date: 20160815
  Serious: Yes (Hospitalization, Other)
  Sender: FDA-Public Use
  Company Number: US-MDT-ADR-2015-02217

PATIENT
  Age: 19 Year
  Sex: Male

DRUGS (3)
  1. LIORESAL [Suspect]
     Active Substance: BACLOFEN
     Route: 037
  2. LIORESAL [Suspect]
     Active Substance: BACLOFEN
     Route: 037
  3. LIORESAL [Suspect]
     Active Substance: BACLOFEN
     Route: 037

REACTIONS (6)
  - No therapeutic response [Unknown]
  - Lethargy [Unknown]
  - Overdose [Unknown]
  - Incoherent [Unknown]
  - Seizure [Unknown]
  - Hypersomnia [Unknown]

NARRATIVE: CASE EVENT DATE: 201511
